FAERS Safety Report 12137119 (Version 1)
Quarter: 2016Q1

REPORT INFORMATION
  Report Type: Spontaneous
  Country: US (occurrence: None)
  Receive Date: 20160301
  Receipt Date: 20160301
  Transmission Date: 20160526
  Serious: Yes (Life-Threatening, Hospitalization)
  Sender: FDA-Public Use
  Company Number: 200036745

PATIENT
  Age: 4 Year
  Sex: Female

DRUGS (2)
  1. ANTISPETIC MOUTH RINSE [Suspect]
     Active Substance: EUCALYPTOL\MENTHOL\METHYL SALICYLATE\THYMOL
     Indication: DENTAL DISORDER PROPHYLAXIS
     Dosage: INGESTION OF 8OZ MORE OR LESS 1 SINGLE DOSE ORAL CONSUMPTION?
     Route: 048
     Dates: start: 20160207
  2. INACTIVE INGREDIENT OF ALCOHOL 21.6% [Concomitant]

REACTIONS (3)
  - Accidental exposure to product [None]
  - Accidental exposure to product by child [None]
  - Respiratory failure [None]

NARRATIVE: CASE EVENT DATE: 20160207
